FAERS Safety Report 15793651 (Version 4)
Quarter: 2019Q4

REPORT INFORMATION
  Report Type: Spontaneous
  Country: US (occurrence: US)
  Receive Date: 20190107
  Receipt Date: 20191202
  Transmission Date: 20200122
  Serious: No
  Sender: FDA-Public Use
  Company Number: US-PFIZER INC-2017334473

PATIENT
  Age: 12 Year
  Sex: Male
  Weight: 42 kg

DRUGS (3)
  1. GENOTROPIN [Suspect]
     Active Substance: SOMATROPIN
     Indication: BLOOD GROWTH HORMONE
     Dosage: 2 MG, DAILY [SEVEN DAYS A WEEK]
     Dates: start: 20070617
  2. GENOTROPIN [Suspect]
     Active Substance: SOMATROPIN
     Indication: PRECOCIOUS PUBERTY
     Dosage: 2MG, INJECTION, IN HIS LEGS ABOVE HIS KNEE, ONCE EVERY NIGHT
     Dates: start: 201706
  3. GENOTROPIN [Suspect]
     Active Substance: SOMATROPIN
     Dosage: UNK, [2.0 INJECTION EVERY DAY]

REACTIONS (5)
  - Device issue [Unknown]
  - Injection site pain [Unknown]
  - Product use in unapproved indication [Unknown]
  - Product dose omission [Unknown]
  - Device difficult to use [Unknown]

NARRATIVE: CASE EVENT DATE: 20070617
